FAERS Safety Report 6187263-X (Version None)
Quarter: 2009Q2

REPORT INFORMATION
  Report Type: 
  Country: None (occurrence: None)
  Receive Date: 20090512
  Receipt Date: 20090508
  Transmission Date: 20091009
  Serious: Yes (Hospitalization)
  Sender: FDA-Public Use
  Company Number: ZA-ABBOTT-09P-143-0572203-00

PATIENT
  Sex: Female

DRUGS (7)
  1. REDUCTIL 10MG [Suspect]
     Indication: WEIGHT CONTROL
     Route: 048
     Dates: start: 20090414, end: 20090429
  2. METFORMIN HCL [Concomitant]
     Indication: WEIGHT CONTROL
     Route: 048
     Dates: start: 20090414, end: 20090429
  3. ORLISTAT [Concomitant]
     Indication: WEIGHT CONTROL
     Route: 048
     Dates: start: 20090414, end: 20090429
  4. SPASMO-CANULASE BITABS [Concomitant]
     Indication: IRRITABLE BOWEL SYNDROME
     Route: 048
  5. CHLORDLAZEPOXIDE 5MG/CLIDINIUM BROMIDE 2.5 MG [Concomitant]
     Indication: IRRITABLE BOWEL SYNDROME
     Route: 048
     Dates: end: 20090429
  6. BETAHISTINE HYDROCHLORIDE [Concomitant]
     Indication: MENIERE'S DISEASE
     Route: 048
  7. 10 HERBS PLUS PROBIOTIC [Concomitant]
     Indication: DRUG USE FOR UNKNOWN INDICATION
     Route: 048
     Dates: end: 20090429

REACTIONS (2)
  - FORMICATION [None]
  - HYPERTENSION [None]
